FAERS Safety Report 6124018-6 (Version None)
Quarter: 2009Q1

REPORT INFORMATION
  Report Type: 
  Country: None (occurrence: None)
  Receive Date: 20090319
  Receipt Date: 20090309
  Transmission Date: 20090719
  Serious: Yes (Other)
  Sender: FDA-Public Use
  Company Number: DE-JNJFOC-20081203875

PATIENT
  Age: 25 Year
  Sex: Male
  Weight: 76 kg

DRUGS (10)
  1. REMICADE [Suspect]
     Route: 042
  2. REMICADE [Suspect]
     Route: 042
  3. REMICADE [Suspect]
     Dosage: OVER 2 HOURS
     Route: 042
  4. REMICADE [Suspect]
     Dosage: OVER 2 HOURS
     Route: 042
  5. REMICADE [Suspect]
     Route: 042
  6. REMICADE [Suspect]
     Indication: ANKYLOSING SPONDYLITIS
     Route: 042
  7. METHOTREXATE [Concomitant]
  8. UNKNOWN MEDICATION [Concomitant]
  9. SOLU-DECORTIN [Concomitant]
     Indication: PREMEDICATION
  10. FENISTIL [Concomitant]
     Indication: PREMEDICATION

REACTIONS (4)
  - DYSPNOEA [None]
  - INFUSION RELATED REACTION [None]
  - PALPITATIONS [None]
  - SWELLING FACE [None]
